FAERS Safety Report 6692273-X (Version None)
Quarter: 2010Q2

REPORT INFORMATION
  Report Type: 
  Country: None (occurrence: None)
  Receive Date: 20100422
  Receipt Date: 20100414
  Transmission Date: 20101027
  Serious: Yes (Hospitalization)
  Sender: FDA-Public Use
  Company Number: US-AMGEN-KDC406269

PATIENT
  Sex: Female

DRUGS (5)
  1. NEULASTA [Suspect]
     Indication: NEOPLASM MALIGNANT
     Route: 058
     Dates: start: 20091026
  2. BEVACIZUMAB [Suspect]
     Route: 042
     Dates: start: 20091026
  3. DOXORUBICIN HCL [Suspect]
     Dates: start: 20091026
  4. PACLITAXEL [Suspect]
     Route: 042
     Dates: start: 20091026
  5. CYCLOPHOSPHAMIDE [Suspect]
     Route: 042
     Dates: start: 20091026

REACTIONS (4)
  - BLOOD POTASSIUM DECREASED [None]
  - COLITIS [None]
  - HAEMOGLOBIN DECREASED [None]
  - HYPERTENSION [None]
